FAERS Safety Report 22055382 (Version 1)
Quarter: 2023Q1

REPORT INFORMATION
  Report Type: Spontaneous
  Country: EG (occurrence: EG)
  Receive Date: 20230302
  Receipt Date: 20230302
  Transmission Date: 20230417
  Serious: Yes (Other)
  Sender: FDA-Public Use
  Company Number: EG-PFIZER INC-202200305203

PATIENT
  Age: 49 Year
  Sex: Female

DRUGS (2)
  1. SUTENT [Suspect]
     Active Substance: SUNITINIB MALATE
     Indication: Gastrointestinal stromal tumour
     Dosage: 37.5 MG, CYCLIC(3 TABS ONCE DAILY FOR 2 WEEKS ON THEN 1 WEEK OFF)
     Route: 048
  2. SUTENT [Suspect]
     Active Substance: SUNITINIB MALATE
     Indication: Metastatic renal cell carcinoma
     Dosage: 37.5 MG, CYCLIC(3 TABS ONCE DAILY FOR 2 WEEKS ON THEN 1 WEEK OFF)
     Route: 048

REACTIONS (3)
  - Second primary malignancy [Unknown]
  - Breast cancer [Unknown]
  - Swelling face [Unknown]
